FAERS Safety Report 17240986 (Version 1)
Quarter: 2020Q1

REPORT INFORMATION
  Report Type: Spontaneous
  Country: FR (occurrence: FR)
  Receive Date: 20200107
  Receipt Date: 20200107
  Transmission Date: 20200409
  Serious: Yes (Hospitalization)
  Sender: FDA-Public Use
  Company Number: FR-TEVA-2019-FR-1162421

PATIENT
  Age: 48 Year
  Sex: Female

DRUGS (2)
  1. PROGESTERONE. [Suspect]
     Active Substance: PROGESTERONE
     Indication: METRORRHAGIA
     Dosage: 200 MG / D FROM THE 15TH TO THE 25TH DAY OF THE CYCLE
     Route: 048
     Dates: start: 20191020, end: 20191124
  2. EXACYL [Interacting]
     Active Substance: TRANEXAMIC ACID
     Indication: METRORRHAGIA
     Dosage: NOT SPECIFIED
     Route: 065
     Dates: start: 20191020, end: 20191023

REACTIONS (2)
  - Drug interaction [Unknown]
  - Ischaemic stroke [Recovering/Resolving]

NARRATIVE: CASE EVENT DATE: 20191124
